FAERS Safety Report 10070044 (Version 1)
Quarter: 2014Q2

REPORT INFORMATION
  Report Type: Spontaneous
  Country: SE (occurrence: None)
  Receive Date: 20140408
  Receipt Date: 20140408
  Transmission Date: 20141212
  Serious: Yes (Hospitalization)
  Sender: FDA-Public Use
  Company Number: SE-SEPTODONT-201401818

PATIENT
  Age: 9 Year
  Sex: Female

DRUGS (1)
  1. SEPTOCAINE [Suspect]
     Indication: LOCAL ANAESTHESIA
     Dosage: DENTAL
     Dates: start: 20131119, end: 20131119

REACTIONS (3)
  - Syncope [None]
  - Loss of consciousness [None]
  - Convulsion [None]
